FAERS Safety Report 7366456-X (Version None)
Quarter: 2011Q1

REPORT INFORMATION
  Report Type: 
  Country: None (occurrence: None)
  Receive Date: 20110317
  Receipt Date: 20110317
  Transmission Date: 20110831
  Serious: Yes (Life-Threatening, Hospitalization)
  Sender: FDA-Public Use
  Company Number: None

PATIENT
  Age: 17 Year
  Sex: Male
  Weight: 55 kg

DRUGS (8)
  1. PREDNISONE [Concomitant]
  2. PROGRAF [Suspect]
     Indication: IMMUNOSUPPRESSION
     Dates: start: 20110217, end: 20110221
  3. PROGRAF [Suspect]
     Indication: RENAL TRANSPLANT
     Dates: start: 20110217, end: 20110221
  4. PRECOCET [Concomitant]
  5. LABETALOL HCL [Concomitant]
  6. BACTRIM [Concomitant]
  7. MYFORTIC [Concomitant]
  8. NEXIUM [Concomitant]

REACTIONS (4)
  - POSTERIOR REVERSIBLE ENCEPHALOPATHY SYNDROME [None]
  - NEUROTOXICITY [None]
  - GRAND MAL CONVULSION [None]
  - HYPERTENSION [None]
